FAERS Safety Report 25077203 (Version 1)
Quarter: 2025Q1

REPORT INFORMATION
  Report Type: Spontaneous
  Country: GB (occurrence: GB)
  Receive Date: 20250314
  Receipt Date: 20250314
  Transmission Date: 20250409
  Serious: Yes (Other)
  Sender: TEVA
  Company Number: None

PATIENT
  Sex: Male
  Weight: 70 kg

DRUGS (1)
  1. DOXYCYCLINE [Suspect]
     Active Substance: DOXYCYCLINE
     Indication: Product used for unknown indication
     Dosage: 100MG 12 HOURS APART
     Route: 065
     Dates: start: 20250227

REACTIONS (5)
  - Tinnitus [Not Recovered/Not Resolved]
  - Panic attack [Recovering/Resolving]
  - Fatigue [Recovering/Resolving]
  - Brain fog [Recovering/Resolving]
  - Chills [Recovering/Resolving]

NARRATIVE: CASE EVENT DATE: 20250227
